FAERS Safety Report 12549650 (Version 1)
Quarter: 2016Q3

REPORT INFORMATION
  Report Type: Other
  Country: FR (occurrence: FR)
  Receive Date: 20160712
  Receipt Date: 20160712
  Transmission Date: 20161109
  Serious: Yes (Other)
  Sender: FDA-Public Use
  Company Number: FR-ASTELLAS-2016US025977

PATIENT
  Age: 37 Year
  Sex: Female

DRUGS (1)
  1. PROTOPIC [Suspect]
     Active Substance: TACROLIMUS
     Indication: ECZEMA
     Dosage: UNK UNK, UNKNOWN FREQ.
     Route: 003
     Dates: start: 20100101, end: 20130101

REACTIONS (4)
  - Burning sensation [Not Recovered/Not Resolved]
  - Swelling [Unknown]
  - Erythema [Not Recovered/Not Resolved]
  - Formication [Not Recovered/Not Resolved]

NARRATIVE: CASE EVENT DATE: 20101001
